FAERS Safety Report 25508304 (Version 1)
Quarter: 2025Q3

REPORT INFORMATION
  Report Type: Report from Study
  Country: US (occurrence: US)
  Receive Date: 20250703
  Receipt Date: 20250703
  Transmission Date: 20251021
  Serious: Yes (Hospitalization)
  Sender: ABBVIE
  Company Number: US-ABBVIE-6350105

PATIENT
  Sex: Female

DRUGS (2)
  1. HUMIRA [Suspect]
     Active Substance: ADALIMUMAB
     Indication: Product used for unknown indication
     Route: 058
     Dates: start: 20220101
  2. TREMFYA [Concomitant]
     Active Substance: GUSELKUMAB
     Indication: Product used for unknown indication

REACTIONS (5)
  - Hepatic enzyme increased [Unknown]
  - Fibromyalgia [Not Recovered/Not Resolved]
  - Arthritis [Not Recovered/Not Resolved]
  - Asthenia [Unknown]
  - Fatigue [Unknown]
